FAERS Safety Report 10502107 (Version 1)
Quarter: 2014Q4

REPORT INFORMATION
  Report Type: Spontaneous
  Country: IN (occurrence: IN)
  Receive Date: 20141007
  Receipt Date: 20141007
  Transmission Date: 20150528
  Serious: Yes (Hospitalization, Other)
  Sender: FDA-Public Use
  Company Number: IN-WATSON-2014-21201

PATIENT
  Age: 69 Year
  Sex: Male

DRUGS (5)
  1. RABEPRAZOLE [Concomitant]
     Active Substance: RABEPRAZOLE
     Indication: PRODUCT USED FOR UNKNOWN INDICATION
     Dosage: 20 MG, DAILY
     Route: 065
  2. LEVOFLOXACIN (UNKNOWN) [Suspect]
     Active Substance: LEVOFLOXACIN
     Indication: PYREXIA
     Dosage: 500 MG, BID
     Route: 065
  3. FURAZOLIDONE (UNKNOWN) [Interacting]
     Active Substance: FURAZOLIDONE
     Indication: PYREXIA
  4. LEVOFLOXACIN (UNKNOWN) [Interacting]
     Active Substance: LEVOFLOXACIN
     Indication: DIARRHOEA
  5. FURAZOLIDONE (UNKNOWN) [Interacting]
     Active Substance: FURAZOLIDONE
     Indication: DIARRHOEA
     Dosage: 100 MG, TID
     Route: 065

REACTIONS (2)
  - Toxic epidermal necrolysis [Recovered/Resolved]
  - Potentiating drug interaction [Recovered/Resolved]
